FAERS Safety Report 25538163 (Version 1)
Quarter: 2025Q3

REPORT INFORMATION
  Report Type: Spontaneous
  Country: JP (occurrence: JP)
  Receive Date: 20250710
  Receipt Date: 20250710
  Transmission Date: 20251020
  Serious: Yes (Other)
  Sender: MYLAN
  Company Number: JP-VIATRISJAPAN-2025M1056158AA

PATIENT
  Age: 9 Decade
  Sex: Male

DRUGS (28)
  1. NORVASC [Suspect]
     Active Substance: AMLODIPINE BESYLATE
     Indication: Product used for unknown indication
  2. NORVASC [Suspect]
     Active Substance: AMLODIPINE BESYLATE
     Route: 048
  3. NORVASC [Suspect]
     Active Substance: AMLODIPINE BESYLATE
     Route: 048
  4. NORVASC [Suspect]
     Active Substance: AMLODIPINE BESYLATE
  5. BISOPROLOL FUMARATE [Suspect]
     Active Substance: BISOPROLOL FUMARATE
     Indication: Product used for unknown indication
  6. BISOPROLOL FUMARATE [Suspect]
     Active Substance: BISOPROLOL FUMARATE
     Route: 048
  7. BISOPROLOL FUMARATE [Suspect]
     Active Substance: BISOPROLOL FUMARATE
     Route: 048
  8. BISOPROLOL FUMARATE [Suspect]
     Active Substance: BISOPROLOL FUMARATE
  9. EDOXABAN TOSYLATE [Concomitant]
     Active Substance: EDOXABAN TOSYLATE
     Indication: Product used for unknown indication
  10. EDOXABAN TOSYLATE [Concomitant]
     Active Substance: EDOXABAN TOSYLATE
     Route: 048
  11. EDOXABAN TOSYLATE [Concomitant]
     Active Substance: EDOXABAN TOSYLATE
     Route: 048
  12. EDOXABAN TOSYLATE [Concomitant]
     Active Substance: EDOXABAN TOSYLATE
  13. TOPIROXOSTAT [Concomitant]
     Active Substance: TOPIROXOSTAT
     Indication: Product used for unknown indication
  14. TOPIROXOSTAT [Concomitant]
     Active Substance: TOPIROXOSTAT
     Route: 048
  15. TOPIROXOSTAT [Concomitant]
     Active Substance: TOPIROXOSTAT
     Route: 048
  16. TOPIROXOSTAT [Concomitant]
     Active Substance: TOPIROXOSTAT
  17. ELDECALCITOL [Concomitant]
     Active Substance: ELDECALCITOL
     Indication: Product used for unknown indication
  18. ELDECALCITOL [Concomitant]
     Active Substance: ELDECALCITOL
     Route: 048
  19. ELDECALCITOL [Concomitant]
     Active Substance: ELDECALCITOL
     Route: 048
  20. ELDECALCITOL [Concomitant]
     Active Substance: ELDECALCITOL
  21. LACTULOSE [Concomitant]
     Active Substance: LACTULOSE
     Indication: Product used for unknown indication
  22. LACTULOSE [Concomitant]
     Active Substance: LACTULOSE
     Route: 048
  23. LACTULOSE [Concomitant]
     Active Substance: LACTULOSE
     Route: 048
  24. LACTULOSE [Concomitant]
     Active Substance: LACTULOSE
  25. BONALON [Concomitant]
     Active Substance: ALENDRONATE SODIUM
     Indication: Product used for unknown indication
  26. BONALON [Concomitant]
     Active Substance: ALENDRONATE SODIUM
     Route: 048
  27. BONALON [Concomitant]
     Active Substance: ALENDRONATE SODIUM
     Route: 048
  28. BONALON [Concomitant]
     Active Substance: ALENDRONATE SODIUM

REACTIONS (1)
  - BRASH syndrome [Unknown]
